FAERS Safety Report 20847432 (Version 1)
Quarter: 2022Q2

REPORT INFORMATION
  Report Type: Spontaneous
  Country: US (occurrence: US)
  Receive Date: 20220519
  Receipt Date: 20220519
  Transmission Date: 20220721
  Serious: No
  Sender: FDA-Public Use
  Company Number: US-SUN PHARMACEUTICAL INDUSTRIES LTD-2022R1-329814

PATIENT
  Age: 21 Year
  Sex: Male

DRUGS (1)
  1. ABSORICA LD [Suspect]
     Active Substance: ISOTRETINOIN
     Indication: Product used for unknown indication
     Dosage: 32 MILLIGRAM/ EVENING DOSE
     Route: 065

REACTIONS (2)
  - Fatigue [Unknown]
  - Irritability [Unknown]
